FAERS Safety Report 4629540-7 (Version None)
Quarter: 2005Q2

REPORT INFORMATION
  Report Type: 
  Country: None (occurrence: None)
  Receive Date: 20050405
  Receipt Date: 20050317
  Transmission Date: 20051028
  Serious: Yes (Death)
  Sender: FDA-Public Use
  Company Number: 200510581BWH

PATIENT
  Age: 63 Year
  Sex: Male
  Weight: 67.1324 kg

DRUGS (1)
  1. TRASYLOL [Suspect]
     Indication: CORONARY ARTERY SURGERY
     Dosage: INTRAVENOUS
     Route: 042
     Dates: start: 20050311

REACTIONS (4)
  - COMA [None]
  - HEPATIC FAILURE [None]
  - HYPOXIA [None]
  - PROCEDURAL COMPLICATION [None]
